FAERS Safety Report 4768194-6 (Version None)
Quarter: 2005Q3

REPORT INFORMATION
  Report Type: 
  Country: None (occurrence: None)
  Receive Date: 20050912
  Receipt Date: 20050912
  Transmission Date: 20060218
  Serious: Yes (Life-Threatening, Hospitalization)
  Sender: FDA-Public Use
  Company Number: None

PATIENT
  Age: 58 Year
  Sex: Male
  Weight: 53 kg

DRUGS (7)
  1. ENOXAPARIN SODIUM [Suspect]
     Indication: DEEP VEIN THROMBOSIS
     Dosage: 60MG SC Q12H
     Route: 058
     Dates: start: 20050308, end: 20050324
  2. LOSARTAN POTASSIUM [Concomitant]
  3. DILTIAZEM [Concomitant]
  4. FUROSEMIDE [Concomitant]
  5. FERROUS SULFATE [Concomitant]
  6. FOLIC ACID [Concomitant]
  7. WARFARIN [Concomitant]

REACTIONS (5)
  - BACK PAIN [None]
  - EXTRADURAL HAEMATOMA [None]
  - FAECAL INCONTINENCE [None]
  - MONOPLEGIA [None]
  - URINARY INCONTINENCE [None]
